FAERS Safety Report 7628398-1 (Version None)
Quarter: 2011Q3

REPORT INFORMATION
  Report Type: 
  Country: None (occurrence: None)
  Receive Date: 20110722
  Receipt Date: 20110719
  Transmission Date: 20111222
  Serious: No
  Sender: FDA-Public Use
  Company Number: US-PFIZER INC-2006000982

PATIENT
  Sex: Male

DRUGS (8)
  1. NEURONTIN [Suspect]
     Dosage: 300 MG, UNK
  2. NEURONTIN [Suspect]
     Dosage: 4000 MG A DAY
  3. NEURONTIN [Suspect]
     Indication: NEUROPATHY PERIPHERAL
     Dosage: 1000 MG, 2X/DAY
  4. ACCUPRIL [Concomitant]
     Route: 065
  5. LIPITOR [Suspect]
     Indication: BLOOD CHOLESTEROL INCREASED
     Dosage: UNK
  6. KLONOPIN [Concomitant]
  7. LYRICA [Suspect]
     Dosage: 75 MG, 2X/DAY
     Dates: start: 20051221
  8. GLUCOPHAGE [Concomitant]

REACTIONS (8)
  - BLOOD CHOLESTEROL INCREASED [None]
  - SOMNOLENCE [None]
  - WEIGHT DECREASED [None]
  - INSOMNIA [None]
  - DECREASED APPETITE [None]
  - NEUROPATHY PERIPHERAL [None]
  - HEPATIC ENZYME INCREASED [None]
  - BURNING SENSATION [None]
